FAERS Safety Report 7594701-4 (Version None)
Quarter: 2011Q3

REPORT INFORMATION
  Report Type: 
  Country: None (occurrence: None)
  Receive Date: 20110707
  Receipt Date: 20110629
  Transmission Date: 20111222
  Serious: Yes (Other)
  Sender: FDA-Public Use
  Company Number: JP-ASTELLAS-2011JP004359

PATIENT
  Age: 23 Year
  Sex: Male

DRUGS (6)
  1. PROGRAF [Suspect]
     Indication: PROPHYLAXIS AGAINST GRAFT VERSUS HOST DISEASE
     Dosage: UNK
     Route: 065
  2. METHOTREXATE [Concomitant]
     Indication: PROPHYLAXIS AGAINST GRAFT VERSUS HOST DISEASE
     Route: 065
  3. ANTI-THYMOCYTE GLOBULIN NOS [Concomitant]
     Route: 065
  4. IDARUBICIN HCL [Concomitant]
     Route: 065
  5. CYTARABINE [Concomitant]
     Route: 065
  6. CYCLOPHOSPHAMIDE [Concomitant]
     Route: 065

REACTIONS (2)
  - INAPPROPRIATE ANTIDIURETIC HORMONE SECRETION [None]
  - HUMAN HERPESVIRUS 6 INFECTION [None]
